FAERS Safety Report 4577260-X (Version None)
Quarter: 2005Q1

REPORT INFORMATION
  Report Type: 
  Country: None (occurrence: None)
  Receive Date: 20050209
  Receipt Date: 20050204
  Transmission Date: 20050727
  Serious: Yes (Hospitalization)
  Sender: FDA-Public Use
  Company Number: 05-02-0167

PATIENT
  Age: 74 Year
  Sex: Male

DRUGS (1)
  1. CLOZAPINE [Suspect]
     Indication: DEMENTIA
     Dosage: 50 MG QD ORAL
     Route: 048
     Dates: start: 20050101

REACTIONS (2)
  - CATHETER RELATED COMPLICATION [None]
  - HAEMORRHAGE [None]
